FAERS Safety Report 8517194-9 (Version None)
Quarter: 2012Q3

REPORT INFORMATION
  Report Type: 
  Country: None (occurrence: None)
  Receive Date: 20120706
  Receipt Date: 20120621
  Transmission Date: 20120928
  Serious: Yes (Life-Threatening)
  Sender: FDA-Public Use
  Company Number: 1327237

PATIENT
  Age: 66 Year
  Sex: Female

DRUGS (6)
  1. ALOXI [Concomitant]
  2. OMEPRAZOLE [Concomitant]
  3. PACLITAXEL [Suspect]
     Indication: OVARIAN CANCER
     Dosage: SEE IMAGE
     Route: 042
     Dates: start: 20120618, end: 20120618
  4. PACLITAXEL [Suspect]
     Indication: OVARIAN CANCER
     Dosage: SEE IMAGE
     Route: 042
     Dates: start: 20120618, end: 20120618
  5. DEXAMETHASONE SODIUM PHOSPHATE [Concomitant]
  6. (TRIMETON /00072502/) [Concomitant]

REACTIONS (2)
  - LOSS OF CONSCIOUSNESS [None]
  - ANAPHYLACTIC SHOCK [None]
